FAERS Safety Report 9025489 (Version 1)
Quarter: 2013Q1

REPORT INFORMATION
  Report Type: Report from Study
  Country: US (occurrence: US)
  Receive Date: 20130122
  Receipt Date: 20130122
  Transmission Date: 20140127
  Serious: Yes (Other)
  Sender: FDA-Public Use
  Company Number: US-ABBOTT-13P-163-1038768-00

PATIENT
  Age: 35 Year
  Sex: 0

DRUGS (2)
  1. SYNTHROID [Suspect]
     Indication: HYPOTHYROIDISM
     Dates: start: 2005
  2. SYNTHROID [Suspect]
     Dosage: DOSAGE WAS DOUBLED

REACTIONS (21)
  - Goitre [Unknown]
  - Fatigue [Unknown]
  - Mood swings [Unknown]
  - Anger [Unknown]
  - Pain [Unknown]
  - Impatience [Unknown]
  - Fatigue [Unknown]
  - Memory impairment [Unknown]
  - Neck pain [Unknown]
  - Irritability [Unknown]
  - Alopecia [Unknown]
  - Weight increased [Unknown]
  - Hypothyroidism [Unknown]
  - Sinus disorder [Unknown]
  - Headache [Unknown]
  - Abdominal pain upper [Unknown]
  - Myalgia [Unknown]
  - Arthralgia [Unknown]
  - Arthralgia [Unknown]
  - Drug ineffective [Unknown]
  - Initial insomnia [Unknown]
